FAERS Safety Report 6423955-2 (Version None)
Quarter: 2009Q4

REPORT INFORMATION
  Report Type: 
  Country: None (occurrence: None)
  Receive Date: 20091102
  Receipt Date: 20091022
  Transmission Date: 20100525
  Serious: Yes (Other)
  Sender: FDA-Public Use
  Company Number: PHHY2009DE28244

PATIENT
  Age: 55 Year
  Sex: Male

DRUGS (3)
  1. RASILEZ [Suspect]
     Indication: HYPERTENSION
     Dosage: UNK
     Route: 048
  2. BELOC ZOK [Concomitant]
     Dosage: 95MG/DAY
     Route: 048
  3. NORVASC [Concomitant]
     Indication: HYPERTENSION
     Dosage: 2.5 MG BID
     Route: 048

REACTIONS (6)
  - ANAEMIA [None]
  - DIARRHOEA [None]
  - HYPOTENSION [None]
  - LEUKOCYTOSIS [None]
  - RASH [None]
  - THROMBOCYTOSIS [None]
